FAERS Safety Report 13677355 (Version 1)
Quarter: 2017Q2

REPORT INFORMATION
  Report Type: Spontaneous
  Country: US (occurrence: US)
  Receive Date: 20170622
  Receipt Date: 20170622
  Transmission Date: 20170830
  Serious: Yes (Hospitalization, Other)
  Sender: FDA-Public Use
  Company Number: US-MYLANLABS-2017M1036962

PATIENT

DRUGS (2)
  1. DIPHENHYDRAMINE. [Suspect]
     Active Substance: DIPHENHYDRAMINE
     Indication: INTENTIONAL OVERDOSE
     Dosage: 20-30 TABLETS IF 25MG
     Route: 048
  2. DIPHENHYDRAMINE. [Suspect]
     Active Substance: DIPHENHYDRAMINE
     Indication: SLEEP DISORDER
     Route: 048

REACTIONS (6)
  - Restless legs syndrome [Recovering/Resolving]
  - Hypersomnia [Recovering/Resolving]
  - Condition aggravated [Recovering/Resolving]
  - Loss of consciousness [Recovering/Resolving]
  - Mental status changes [Recovering/Resolving]
  - Intentional overdose [Recovering/Resolving]
